FAERS Safety Report 12563800 (Version 2)
Quarter: 2016Q3

REPORT INFORMATION
  Report Type: Spontaneous
  Country: US (occurrence: US)
  Receive Date: 20160716
  Receipt Date: 20160726
  Transmission Date: 20161109
  Serious: Yes (Other)
  Sender: FDA-Public Use
  Company Number: US-AUROBINDO-AUR-APL-2016-08925

PATIENT
  Sex: Male

DRUGS (1)
  1. MINOCYCLINE [Suspect]
     Active Substance: MINOCYCLINE\MINOCYCLINE HYDROCHLORIDE
     Indication: ACNE
     Dosage: 200 MG, UNK
     Route: 048

REACTIONS (7)
  - Frequent bowel movements [Recovered/Resolved]
  - Weight decreased [Recovered/Resolved]
  - Hyperthyroidism [Recovered/Resolved]
  - Fatigue [Recovered/Resolved]
  - Temperature intolerance [Recovered/Resolved]
  - Polydipsia [Recovered/Resolved]
  - Headache [Recovered/Resolved]
